FAERS Safety Report 6891515-5 (Version None)
Quarter: 2010Q3

REPORT INFORMATION
  Report Type: 
  Country: None (occurrence: None)
  Receive Date: 20100731
  Receipt Date: 20080313
  Transmission Date: 20110219
  Serious: No
  Sender: FDA-Public Use
  Company Number: US-PFIZER INC-2007028323

PATIENT
  Sex: Male

DRUGS (9)
  1. NORVASC [Suspect]
     Dates: start: 20061201, end: 20070101
  2. NORMODYNE [Concomitant]
  3. LIPITOR [Concomitant]
  4. ECHINACEA [Concomitant]
  5. ACETYLSALICYLIC ACID SRT [Concomitant]
  6. VITAMINS [Concomitant]
  7. FLONASE [Concomitant]
  8. VIAGRA [Concomitant]
  9. ACETAMINOPHEN [Concomitant]

REACTIONS (1)
  - VERTIGO [None]
